FAERS Safety Report 7936521-4 (Version None)
Quarter: 2011Q4

REPORT INFORMATION
  Report Type: 
  Country: None (occurrence: None)
  Receive Date: 20111121
  Receipt Date: 20110413
  Transmission Date: 20120403
  Serious: No
  Sender: FDA-Public Use
  Company Number: 2010026898

PATIENT
  Sex: Female
  Weight: 78.4723 kg

DRUGS (2)
  1. BERINERT [Suspect]
     Indication: HEREDITARY ANGIOEDEMA
     Dosage: (1000 INTRAVENOUS (NOT OTHERWISE SPECIFIED))
     Route: 042
     Dates: start: 20100904
  2. DANAZOL [Concomitant]

REACTIONS (4)
  - INCORRECT DRUG ADMINISTRATION DURATION [None]
  - VISUAL FIELD DEFECT [None]
  - VISUAL IMPAIRMENT [None]
  - HEADACHE [None]
